FAERS Safety Report 6288362-4 (Version None)
Quarter: 2009Q3

REPORT INFORMATION
  Report Type: 
  Country: None (occurrence: None)
  Receive Date: 20090729
  Receipt Date: 20090723
  Transmission Date: 20100115
  Serious: Yes (Hospitalization)
  Sender: FDA-Public Use
  Company Number: AU-ASTRAZENECA-2009SE05717

PATIENT
  Age: 89 Year
  Sex: Female

DRUGS (8)
  1. TENORMIN [Suspect]
     Route: 048
  2. GALANTAMINE HYDROBROMIDE [Suspect]
     Indication: PSYCHOTIC DISORDER
     Route: 048
  3. LIPITOR [Concomitant]
     Indication: CEREBROVASCULAR DISORDER
     Route: 048
  4. ASPIRIN [Concomitant]
     Indication: CEREBROVASCULAR DISORDER
     Route: 048
  5. FOSAMAX [Concomitant]
     Indication: OSTEOPOROSIS
     Route: 048
  6. NEO-CYTAMEN [Concomitant]
     Indication: HYPOVITAMINOSIS
     Dosage: 1 DOSE UNSPEC CYCLICAL
     Route: 065
  7. OSTELIN [Concomitant]
     Indication: OSTEOPOROSIS
     Route: 048
  8. VAGIFEM [Concomitant]
     Route: 065

REACTIONS (3)
  - DIARRHOEA [None]
  - PRESYNCOPE [None]
  - SYNCOPE [None]
